FAERS Safety Report 10043252 (Version 1)
Quarter: 2014Q1

REPORT INFORMATION
  Report Type: Spontaneous
  Country: US (occurrence: None)
  Receive Date: 20140327
  Receipt Date: 20140327
  Transmission Date: 20141002
  Serious: Yes (Disabling)
  Sender: FDA-Public Use
  Company Number: None

PATIENT
  Age: 67 Year
  Sex: Female
  Weight: 67.13 kg

DRUGS (10)
  1. RESTASIS [Suspect]
     Indication: DRY EYE
     Dosage: 1 DROP
     Route: 047
     Dates: start: 201311, end: 20131222
  2. RESTASIS [Suspect]
     Indication: LACRIMATION INCREASED
     Dosage: 1 DROP
     Route: 047
     Dates: start: 201311, end: 20131222
  3. RESTASIS [Suspect]
     Indication: EYELID DISORDER
     Dosage: 1 DROP
     Route: 047
     Dates: start: 201311, end: 20131222
  4. DIOVAN HTC [Concomitant]
  5. TRAZODONE [Concomitant]
  6. FLEXERIL [Concomitant]
  7. NASOCORT [Concomitant]
  8. COQ10 [Concomitant]
  9. MATURE MULTI-VITAMIN [Concomitant]
  10. SYSTANE GELDROPS [Concomitant]

REACTIONS (4)
  - Anosmia [None]
  - Ageusia [None]
  - Dysphonia [None]
  - Drug hypersensitivity [None]
